FAERS Safety Report 22017829 (Version 5)
Quarter: 2023Q1

REPORT INFORMATION
  Report Type: Spontaneous
  Country: US (occurrence: US)
  Receive Date: 20230221
  Receipt Date: 20230328
  Transmission Date: 20230417
  Serious: Yes (Hospitalization)
  Sender: FDA-Public Use
  Company Number: US-KARYOPHARM-2023KPT000581

PATIENT

DRUGS (19)
  1. XPOVIO [Suspect]
     Active Substance: SELINEXOR
     Indication: Plasma cell myeloma
     Dosage: 60 MG, WEEKLY FOR 3 WEEKS ON AND 1 WEEK OFF
     Route: 048
     Dates: start: 20230125, end: 20230207
  2. XPOVIO [Suspect]
     Active Substance: SELINEXOR
     Dosage: 60 MG, WEEKLY FOR 3 WEEKS ON AND 1 WEEK OFF
     Route: 048
     Dates: end: 20230314
  3. ACYCLOVIR [Concomitant]
     Active Substance: ACYCLOVIR
  4. ALLOPURINOL [Concomitant]
     Active Substance: ALLOPURINOL
  5. LIPITOR [Concomitant]
     Active Substance: ATORVASTATIN CALCIUM
  6. LASIX [Concomitant]
     Active Substance: FUROSEMIDE
  7. ELIQUIS [Concomitant]
     Active Substance: APIXABAN
  8. INSULIN GLARGINE [Concomitant]
     Active Substance: INSULIN GLARGINE
  9. LEVOTHYROXINE [Concomitant]
     Active Substance: LEVOTHYROXINE
  10. MAGNESIUM OXIDE [Concomitant]
     Active Substance: MAGNESIUM OXIDE
  11. ONDANSETRON [Concomitant]
     Active Substance: ONDANSETRON
  12. TAMSULOSIN [Concomitant]
     Active Substance: TAMSULOSIN
  13. PEPCID [Concomitant]
     Active Substance: FAMOTIDINE
  14. COLLAGENASE SANTYL [Concomitant]
     Active Substance: COLLAGENASE CLOSTRIDIUM HISTOLYTICUM
  15. VARUBI [ROLAPITANT] [Concomitant]
  16. URSODIOL [Concomitant]
     Active Substance: URSODIOL
  17. POMALYST [Concomitant]
     Active Substance: POMALIDOMIDE
  18. METOPROLOL SUCCINATE [Concomitant]
     Active Substance: METOPROLOL SUCCINATE
  19. NYSTATIN ACTAVIS [Concomitant]

REACTIONS (4)
  - Cholecystitis [Not Recovered/Not Resolved]
  - Localised infection [Not Recovered/Not Resolved]
  - Liver abscess [Unknown]
  - Diarrhoea [Recovered/Resolved]

NARRATIVE: CASE EVENT DATE: 20230201
